FAERS Safety Report 21315714 (Version 1)
Quarter: 2022Q3

REPORT INFORMATION
  Report Type: Spontaneous
  Country: US (occurrence: US)
  Receive Date: 20220909
  Receipt Date: 20220909
  Transmission Date: 20221027
  Serious: No
  Sender: FDA-Public Use
  Company Number: US-ASCENDIS PHARMA-2022US000490

PATIENT

DRUGS (1)
  1. SKYTROFA [Suspect]
     Active Substance: LONAPEGSOMATROPIN-TCGD
     Indication: Product used for unknown indication
     Route: 065

REACTIONS (1)
  - Injection site pain [Unknown]
